FAERS Safety Report 8918715 (Version 1)
Quarter: 2012Q4

REPORT INFORMATION
  Report Type: 
  Country: US (occurrence: US)
  Receive Date: 20121120
  Receipt Date: 20121120
  Transmission Date: 20130627
  Serious: Yes (Other)
  Sender: FDA-Public Use
  Company Number: US-MERCK-1211USA006498

PATIENT
  Sex: Female

DRUGS (2)
  1. ZETIA [Suspect]
     Dosage: 10 mg, UNK
     Route: 048
  2. SIMVASTATIN [Concomitant]
     Dosage: 20 mg, UNK

REACTIONS (1)
  - Rhabdomyolysis [Recovered/Resolved]
